FAERS Safety Report 20723184 (Version 2)
Quarter: 2022Q2

REPORT INFORMATION
  Report Type: Report from Study
  Country: NL (occurrence: NL)
  Receive Date: 20220419
  Receipt Date: 20220527
  Transmission Date: 20220721
  Serious: Yes (Hospitalization, Other)
  Sender: FDA-Public Use
  Company Number: NL-SA-SAC20220408001295

PATIENT
  Age: 62 Year
  Sex: Female

DRUGS (18)
  1. DEXAMETHASONE [Suspect]
     Active Substance: DEXAMETHASONE
     Indication: Product used for unknown indication
     Route: 065
     Dates: start: 20210901, end: 20211215
  2. ISATUXIMAB [Suspect]
     Active Substance: ISATUXIMAB
     Indication: Plasma cell myeloma
     Route: 065
  3. CARFILZOMIB [Suspect]
     Active Substance: CARFILZOMIB
     Indication: Product used for unknown indication
     Dosage: 56 MG/M2
     Route: 065
     Dates: start: 20210901, end: 20211208
  4. CYCLOPHOSPHAMIDE [Suspect]
     Active Substance: CYCLOPHOSPHAMIDE
     Indication: Product used for unknown indication
     Dosage: UNK
     Route: 065
     Dates: start: 20220202, end: 20220202
  5. LENALIDOMIDE [Suspect]
     Active Substance: LENALIDOMIDE
     Indication: Product used for unknown indication
     Dosage: 25 MG
     Route: 065
     Dates: start: 20210821, end: 20211214
  6. LENALIDOMIDE [Suspect]
     Active Substance: LENALIDOMIDE
     Dosage: 40 MG25 MG
     Route: 065
     Dates: start: 20210901, end: 20211214
  7. MELPHALAN [Suspect]
     Active Substance: MELPHALAN
     Indication: Product used for unknown indication
     Dosage: 200 MG/M2
     Route: 065
     Dates: start: 20220315, end: 20220315
  8. ZOLEDRONIC ACID [Concomitant]
     Active Substance: ZOLEDRONIC ACID
     Indication: Prophylaxis
     Dosage: UNK
     Dates: start: 20210908
  9. METOCLOPRAMIDE [Concomitant]
     Active Substance: METOCLOPRAMIDE
     Indication: Prophylaxis
     Dates: start: 20210901
  10. RASBURICASE [Concomitant]
     Active Substance: RASBURICASE
     Indication: Prophylaxis
     Dosage: UNK
     Dates: start: 20210901
  11. CARBASPIRIN CALCIUM [Concomitant]
     Active Substance: CARBASPIRIN CALCIUM
     Indication: Prophylaxis
     Dosage: UNK
     Dates: start: 20210901
  12. CLOPIDOGREL [Concomitant]
     Active Substance: CLOPIDOGREL BISULFATE
     Indication: Transient ischaemic attack
     Dosage: UNK
     Dates: start: 20210914
  13. CLOPIDOGREL [Concomitant]
     Active Substance: CLOPIDOGREL BISULFATE
     Indication: Aphasia
  14. VALACYCLOVIR HYDROCHLORIDE [Concomitant]
     Active Substance: VALACYCLOVIR HYDROCHLORIDE
     Indication: Prophylaxis
     Dates: start: 20210901
  15. PANTOPRAZOLE [Concomitant]
     Active Substance: PANTOPRAZOLE
     Indication: Prophylaxis
     Dosage: UNK
     Dates: start: 20210901
  16. COTRIMOXAZOLE [Concomitant]
     Active Substance: SULFAMETHOXAZOLE\TRIMETHOPRIM
     Indication: Prophylaxis
     Dosage: UNK
     Dates: start: 20210901
  17. ACETAMINOPHEN [Concomitant]
     Active Substance: ACETAMINOPHEN
     Indication: Chills
     Dosage: UNK
     Dates: start: 20210909, end: 20210910
  18. COVID-19 VACCINE [Concomitant]
     Indication: Prophylaxis
     Dosage: UNK
     Dates: start: 20210101, end: 20210101

REACTIONS (1)
  - Sudden hearing loss [Recovered/Resolved with Sequelae]

NARRATIVE: CASE EVENT DATE: 20220402
